FAERS Safety Report 16523000 (Version 1)
Quarter: 2019Q3

REPORT INFORMATION
  Report Type: Report from Study
  Country: CA (occurrence: CA)
  Receive Date: 20190703
  Receipt Date: 20190703
  Transmission Date: 20191004
  Serious: Yes (Hospitalization, Other)
  Sender: FDA-Public Use
  Company Number: PHHY2017CA164020

PATIENT
  Age: 26 Year
  Sex: Female

DRUGS (2)
  1. SANDOSTATIN [Suspect]
     Active Substance: OCTREOTIDE ACETATE
     Indication: ACROMEGALY
     Dosage: 100 MCG, QD (FOR 2 WEEKS)
     Route: 058
     Dates: start: 20171102
  2. SANDOSTATIN [Suspect]
     Active Substance: OCTREOTIDE ACETATE
     Indication: ACROMEGALY
     Dosage: 20 MG, QMO
     Route: 030
     Dates: start: 20171116

REACTIONS (30)
  - Dysgeusia [Unknown]
  - Somnolence [Unknown]
  - Headache [Unknown]
  - Abdominal pain upper [Unknown]
  - Depression [Unknown]
  - Chest pain [Unknown]
  - Diarrhoea [Unknown]
  - Dizziness [Unknown]
  - Peripheral swelling [Unknown]
  - Weight increased [Unknown]
  - Memory impairment [Unknown]
  - Amnesia [Unknown]
  - Malaise [Unknown]
  - Hypoaesthesia [Unknown]
  - Syncope [Unknown]
  - Speech disorder [Unknown]
  - Fatigue [Unknown]
  - Anxiety [Unknown]
  - Throat irritation [Unknown]
  - Skin discolouration [Recovering/Resolving]
  - Emotional distress [Not Recovered/Not Resolved]
  - Skin odour abnormal [Unknown]
  - Hyperhidrosis [Unknown]
  - Palpitations [Unknown]
  - Injection site pain [Unknown]
  - Dyspnoea [Unknown]
  - Blood growth hormone decreased [Unknown]
  - Dysphemia [Unknown]
  - Anger [Unknown]
  - Nausea [Unknown]

NARRATIVE: CASE EVENT DATE: 201711
